FAERS Safety Report 14974258 (Version 1)
Quarter: 2018Q2

REPORT INFORMATION
  Report Type: Spontaneous
  Country: CA (occurrence: None)
  Receive Date: 20180605
  Receipt Date: 20180605
  Transmission Date: 20180711
  Serious: Yes (Other)
  Sender: FDA-Public Use
  Company Number: 2018-061076

PATIENT
  Age: 31 Year
  Sex: Female

DRUGS (1)
  1. HYDRASENSE ALLERGY (SODIUM CHLORIDE) NASAL SPRAY, SOLUTION [Suspect]
     Active Substance: SEA WATER
     Dates: start: 20180327

REACTIONS (13)
  - Sinus pain [None]
  - Nasal congestion [None]
  - Anxiety [None]
  - Product label confusion [None]
  - Dyspnoea [None]
  - Pharyngeal oedema [None]
  - Sinusitis [None]
  - Sleep disorder [None]
  - Hypersensitivity [None]
  - Product odour abnormal [None]
  - Gastrointestinal disorder [None]
  - Ear pain [None]
  - Oropharyngeal pain [None]

NARRATIVE: CASE EVENT DATE: 20180327
